FAERS Safety Report 6503159-5 (Version None)
Quarter: 2009Q4

REPORT INFORMATION
  Report Type: 
  Country: None (occurrence: None)
  Receive Date: 20091201
  Receipt Date: 20090616
  Transmission Date: 20100525
  Serious: Yes (Other)
  Sender: FDA-Public Use
  Company Number: 2009-198980-NL

PATIENT
  Age: 23 Year
  Sex: Female
  Weight: 104.3 kg

DRUGS (1)
  1. NUVARING [Suspect]
     Indication: CONTRACEPTION
     Dates: start: 20080601, end: 20090601

REACTIONS (1)
  - PHLEBITIS SUPERFICIAL [None]
